FAERS Safety Report 10608130 (Version 1)
Quarter: 2014Q4

REPORT INFORMATION
  Report Type: Spontaneous
  Country: US (occurrence: US)
  Receive Date: 20141125
  Receipt Date: 20141125
  Transmission Date: 20150529
  Serious: No
  Sender: FDA-Public Use
  Company Number: US-BAYER-2014-173929

PATIENT
  Sex: Male

DRUGS (2)
  1. ENSURE [AMINO ACIDS NOS,MINERALS NOS,VITAMINS NOS] [Concomitant]
  2. ALEVE [Suspect]
     Active Substance: NAPROXEN SODIUM
     Dosage: 2 DF, PRN
     Route: 048

REACTIONS (2)
  - Wrong technique in drug usage process [Unknown]
  - Burning sensation [Not Recovered/Not Resolved]

NARRATIVE: CASE EVENT DATE: 20141121
